FAERS Safety Report 9929271 (Version 3)
Quarter: 2014Q1

REPORT INFORMATION
  Report Type: Spontaneous
  Country: JP (occurrence: JP)
  Receive Date: 20140227
  Receipt Date: 20140325
  Transmission Date: 20141002
  Serious: Yes (Other)
  Sender: FDA-Public Use
  Company Number: JP-TEVA-462852ISR

PATIENT
  Sex: Female

DRUGS (1)
  1. FUROSEMIDE,TAB,40MG [Suspect]
     Indication: OEDEMA
     Dosage: 80 MILLIGRAM DAILY;
     Route: 048
     Dates: start: 20091109, end: 20091126

REACTIONS (3)
  - Anuria [Recovered/Resolved]
  - Anaemia [Unknown]
  - Product substitution issue [Unknown]
